FAERS Safety Report 14567484 (Version 3)
Quarter: 2018Q3

REPORT INFORMATION
  Report Type: Spontaneous
  Country: DE (occurrence: DE)
  Receive Date: 20180223
  Receipt Date: 20180721
  Transmission Date: 20181010
  Serious: Yes (Other)
  Sender: FDA-Public Use
  Company Number: DE-AUROBINDO-AUR-APL-2018-009776

PATIENT

DRUGS (16)
  1. SPIRIVA [Interacting]
     Active Substance: TIOTROPIUM BROMIDE MONOHYDRATE
     Indication: PRODUCT USED FOR UNKNOWN INDICATION
     Dosage: 2.5 MICROGRAM, AS NECESSARY
     Route: 065
  2. MIFLONIDE [Interacting]
     Active Substance: BUDESONIDE
     Indication: PRODUCT USED FOR UNKNOWN INDICATION
     Dosage: UNK
     Route: 065
  3. L?THYROXIN                         /00068001/ [Interacting]
     Active Substance: LEVOTHYROXINE
     Indication: PRODUCT USED FOR UNKNOWN INDICATION
     Dosage: 50 MICROGRAM, ONCE A DAY
     Route: 065
  4. CANDESARTAN+HYDROCHLOROTHIAZIDE TABLETS [Suspect]
     Active Substance: CANDESARTAN CILEXETIL\HYDROCHLOROTHIAZIDE
     Indication: PRODUCT USED FOR UNKNOWN INDICATION
     Dosage: 1 DOSAGE FORM, ONCE A DAY, 16MG/12.5 MG ONE TABLET DAILY AT NIGHT
     Route: 065
  5. SIMVASTATIN FILM?COATED TABLET [Interacting]
     Active Substance: SIMVASTATIN
     Indication: PRODUCT USED FOR UNKNOWN INDICATION
     Dosage: 20 MILLIGRAM, ONCE A DAY
     Route: 065
  6. FORADIL [Interacting]
     Active Substance: FORMOTEROL FUMARATE
     Dosage: 12 MICROGRAM, AS NECESSARY
     Route: 065
  7. PANTOPRAZOLE GASTRO?RESISTANT TABLET [Interacting]
     Active Substance: PANTOPRAZOLE SODIUM
     Dosage: 80 MILLIGRAM, ONCE A DAY
     Route: 065
  8. GLIMEPIRIDE TABLET [Interacting]
     Active Substance: GLIMEPIRIDE
     Indication: PRODUCT USED FOR UNKNOWN INDICATION
     Dosage: 6 MILLIGRAM, ONCE A DAY
     Route: 065
  9. SPIRONOLACTON HEXAL [Interacting]
     Active Substance: SPIRONOLACTONE
     Indication: PRODUCT USED FOR UNKNOWN INDICATION
     Dosage: 50 MILLIGRAM, ONCE A DAY
     Route: 065
  10. SPIRONOLACTON HEXAL [Interacting]
     Active Substance: SPIRONOLACTONE
     Dosage: 6 MILLIGRAM, ONCE A DAY
     Route: 065
  11. MIFLONIDE [Interacting]
     Active Substance: BUDESONIDE
     Dosage: 400 MICROGRAM, AS NECESSARY
     Route: 065
  12. PANTOPRAZOLE GASTRO?RESISTANT TABLET [Suspect]
     Active Substance: PANTOPRAZOLE SODIUM
     Indication: PRODUCT USED FOR UNKNOWN INDICATION
     Dosage: 40 MILLIGRAM, ONCE A DAY
     Route: 065
  13. FORADIL [Interacting]
     Active Substance: FORMOTEROL FUMARATE
     Indication: PRODUCT USED FOR UNKNOWN INDICATION
     Dosage: UNK
     Route: 065
  14. ACETYLSALICYLIC ACID TABLET [Suspect]
     Active Substance: ASPIRIN
     Indication: PRODUCT USED FOR UNKNOWN INDICATION
     Dosage: 1 DOSAGE FORM, ONCE A DAY
     Route: 065
  15. BISOPROLOL FILM?COATED TABLETS [Interacting]
     Active Substance: BISOPROLOL
     Indication: PRODUCT USED FOR UNKNOWN INDICATION
     Dosage: 1 DOSAGE FORM, ONCE A DAY
     Route: 065
  16. SPIRONOLACTON HEXAL [Interacting]
     Active Substance: SPIRONOLACTONE
     Dosage: 50 MG, QD (ONE TABLET DAILY IN THE MORNING)
     Route: 065

REACTIONS (2)
  - Drug interaction [Unknown]
  - Blood glucose increased [Unknown]
